FAERS Safety Report 4587998-6 (Version None)
Quarter: 2005Q1

REPORT INFORMATION
  Report Type: 
  Country: None (occurrence: None)
  Receive Date: 20050215
  Receipt Date: 20050208
  Transmission Date: 20050727
  Serious: Yes (Hospitalization)
  Sender: FDA-Public Use
  Company Number: 2004076844

PATIENT
  Age: 49 Year
  Sex: Male

DRUGS (1)
  1. BENADRYL [Suspect]
     Indication: ILL-DEFINED DISORDER
     Dosage: 400 MG (100 MG, 4 IN 1 D), INTRAVENOUS
     Route: 042

REACTIONS (4)
  - BODY TEMPERATURE INCREASED [None]
  - DIZZINESS [None]
  - TREMOR [None]
  - WHITE BLOOD CELL COUNT INCREASED [None]
